FAERS Safety Report 8260556 (Version 2)
Quarter: 2013Q1

REPORT INFORMATION
  Report Type: Spontaneous
  Country: CA (occurrence: CA)
  Receive Date: 20111123
  Receipt Date: 20130311
  Transmission Date: 20140127
  Serious: Yes (Hospitalization, Other)
  Sender: FDA-Public Use
  Company Number: CA-JNJFOC-20111106228

PATIENT
  Age: 66 Year
  Sex: Female
  Weight: 89 kg

DRUGS (17)
  1. REMICADE [Suspect]
     Indication: CROHN^S DISEASE
     Route: 042
     Dates: start: 20111114
  2. REMICADE [Suspect]
     Indication: CROHN^S DISEASE
     Dosage: THE PATIENT HAD RECEIVED APPROXIMATELY 26 INFUSIONS
     Route: 042
     Dates: start: 20081208
  3. BENADRYL [Concomitant]
     Indication: PREMEDICATION
     Route: 042
     Dates: start: 20111114
  4. VITAMIN B12 [Concomitant]
     Route: 065
  5. HYDROCHLOROTHIAZIDE [Concomitant]
     Route: 048
  6. PAXIL [Concomitant]
     Route: 048
  7. METFORMIN [Concomitant]
     Dosage: 2550 MG
     Route: 048
  8. CARDIZEM [Concomitant]
     Route: 048
  9. BIOCAL D FORTE [Concomitant]
     Dosage: 1000 MG
     Route: 048
  10. SIMVASTATIN [Concomitant]
     Route: 048
  11. DIOVAN [Concomitant]
     Route: 048
  12. PREVACID [Concomitant]
     Route: 048
  13. ASAPHEN [Concomitant]
     Route: 048
  14. EZETROL [Concomitant]
     Route: 048
  15. OTHER THERAPEUTIC PRODUCT [Concomitant]
     Route: 048
  16. METOPROLOL SUCCINATE [Concomitant]
     Route: 048
  17. METOPROLOL SUCCINATE [Concomitant]
     Route: 048

REACTIONS (5)
  - Blood glucose increased [Recovered/Resolved]
  - Chest pain [Recovered/Resolved]
  - Hyperhidrosis [Recovered/Resolved]
  - Infusion related reaction [Recovered/Resolved]
  - Nausea [Recovered/Resolved]
